FAERS Safety Report 6270488-2 (Version None)
Quarter: 2009Q3

REPORT INFORMATION
  Report Type: 
  Country: None (occurrence: None)
  Receive Date: 20090716
  Receipt Date: 20090708
  Transmission Date: 20100115
  Serious: Yes (Hospitalization, Other)
  Sender: FDA-Public Use
  Company Number: FR-BRISTOL-MYERS SQUIBB COMPANY-14697734

PATIENT
  Age: 71 Year
  Sex: Male

DRUGS (6)
  1. COAPROVEL TABS 300MG/12.5MG [Suspect]
     Indication: HYPERTENSION
  2. HYDREA [Suspect]
     Indication: COLITIS
     Dosage: 1 DF = 3 CAPSULES
     Dates: start: 20080422, end: 20080502
  3. HYDREA [Suspect]
     Indication: POLYCYTHAEMIA VERA
     Dosage: 1 DF = 3 CAPSULES
     Dates: start: 20080422, end: 20080502
  4. CIFLOX [Suspect]
     Route: 042
     Dates: start: 20080507, end: 20080509
  5. TAZOCILLINE [Suspect]
     Indication: AGRANULOCYTOSIS
     Dosage: INTERRUPTED ON 09-MAY-2008 AND RECHALLENGED ON 10-MAY-2008
     Dates: start: 20080507
  6. FUROSEMIDE [Suspect]
     Indication: HYPERTENSION

REACTIONS (4)
  - ACUTE GENERALISED EXANTHEMATOUS PUSTULOSIS [None]
  - AGRANULOCYTOSIS [None]
  - BICYTOPENIA [None]
  - RENAL FAILURE ACUTE [None]
